FAERS Safety Report 22335153 (Version 1)
Quarter: 2023Q2

REPORT INFORMATION
  Report Type: Spontaneous
  Country: CN (occurrence: CN)
  Receive Date: 20230518
  Receipt Date: 20230518
  Transmission Date: 20230722
  Serious: Yes (Hospitalization, Other)
  Sender: FDA-Public Use
  Company Number: None

PATIENT
  Age: 52 Year
  Sex: Female

DRUGS (13)
  1. CYCLOPHOSPHAMIDE [Suspect]
     Active Substance: CYCLOPHOSPHAMIDE
     Indication: B-cell lymphoma
     Dosage: 0.8 G, QD (DILUTED WITH 0.9% NS 250 ML)
     Route: 041
     Dates: start: 20230418, end: 20230419
  2. CYCLOPHOSPHAMIDE [Suspect]
     Active Substance: CYCLOPHOSPHAMIDE
     Indication: Chemotherapy
  3. SODIUM CHLORIDE [Suspect]
     Active Substance: SODIUM CHLORIDE
     Indication: Medication dilution
     Dosage: STRENGTH: 0.9%, 250 ML, QD (USED TO DILUTE CYCLOPHOSPHAMIDE 0.8 G)
     Route: 041
     Dates: start: 20230418, end: 20230419
  4. SODIUM CHLORIDE [Suspect]
     Active Substance: SODIUM CHLORIDE
     Dosage: STRENGTH: 0.95%, 250 ML, QD (USED TO DILUTE VINCRISTINE SULFATE 1.8 G)
     Route: 041
     Dates: start: 20230418, end: 20230419
  5. DEXTROSE [Suspect]
     Active Substance: DEXTROSE\DEXTROSE MONOHYDRATE
     Indication: Medication dilution
     Dosage: STRENGTH: 5%, 100 ML (USED TO DILUTE PIRARUBICIN HYDROCHLORIDE 40 MG)
     Route: 065
     Dates: start: 20230418, end: 20230419
  6. DEXTROSE [Suspect]
     Active Substance: DEXTROSE\DEXTROSE MONOHYDRATE
     Dosage: STRENGTH: 5%, 500 ML, QD (USED TO DILUTE ETOPOSIDE 100 MG)
     Route: 041
     Dates: start: 20230418, end: 20230419
  7. ETOPOSIDE [Suspect]
     Active Substance: ETOPOSIDE
     Indication: B-cell lymphoma
     Dosage: 100 MG, QD (DILUTED WITH 5% GS 500 ML)
     Route: 041
     Dates: start: 20230418, end: 20230419
  8. ETOPOSIDE [Suspect]
     Active Substance: ETOPOSIDE
     Indication: Chemotherapy
  9. VINCRISTINE SULFATE [Suspect]
     Active Substance: VINCRISTINE SULFATE
     Indication: B-cell lymphoma
     Dosage: 1.8 G, QD (DILUTED WITH 0.95% NS 250 ML)
     Route: 041
     Dates: start: 20230418, end: 20230419
  10. VINCRISTINE SULFATE [Suspect]
     Active Substance: VINCRISTINE SULFATE
     Indication: Chemotherapy
  11. PIRARUBICIN HYDROCHLORIDE [Suspect]
     Active Substance: PIRARUBICIN HYDROCHLORIDE
     Indication: B-cell lymphoma
     Dosage: 40 MG (DILUTED WITH 5% GS100 ML)
     Route: 065
     Dates: start: 20230418, end: 20230419
  12. EPIRUBICIN HYDROCHLORIDE [Suspect]
     Active Substance: EPIRUBICIN HYDROCHLORIDE
     Indication: B-cell lymphoma
     Dosage: 40 MG, QD
     Route: 041
     Dates: start: 20230418, end: 20230419
  13. EPIRUBICIN HYDROCHLORIDE [Suspect]
     Active Substance: EPIRUBICIN HYDROCHLORIDE
     Indication: Chemotherapy

REACTIONS (2)
  - White blood cell count decreased [Recovered/Resolved]
  - Myelosuppression [Recovered/Resolved]

NARRATIVE: CASE EVENT DATE: 20230426
